FAERS Safety Report 4962848-4 (Version None)
Quarter: 2006Q2

REPORT INFORMATION
  Report Type: 
  Country: None (occurrence: None)
  Receive Date: 20060405
  Receipt Date: 20040618
  Transmission Date: 20061013
  Serious: Yes (Hospitalization)
  Sender: FDA-Public Use
  Company Number: US-SOLVAY-00204002016

PATIENT
  Age: 64 Year
  Sex: Male
  Weight: 72.5 kg

DRUGS (21)
  1. LIPITOR [Concomitant]
     Indication: BLOOD CHOLESTEROL INCREASED
     Dosage: DAILY DOSE: UNK.
     Route: 048
  2. ANDROGEL [Suspect]
     Indication: BLOOD TESTOSTERONE DECREASED
     Dosage: DAILY DOSE: 5 G.
     Route: 062
     Dates: start: 20000101, end: 20050101
  3. ANDROGEL [Suspect]
     Dosage: DAILY DOSE: 7.5 GRAM(S)
     Route: 062
     Dates: start: 20050101
  4. DHEA [Suspect]
     Indication: BLOOD TESTOSTERONE INCREASED
     Dosage: DAILY DOSE: UNK.
     Route: 048
  5. AVAPRO [Concomitant]
     Indication: HYPERTENSION
     Dosage: DAILY DOSE: UNK.
     Route: 048
  6. NASAREL [Concomitant]
     Indication: NASAL CONGESTION
     Dosage: DAILY DOSE: UNK.
     Route: 045
  7. L-ARGININE [Suspect]
     Indication: ILL-DEFINED DISORDER
     Dosage: DAILY DOSE:  UNKNOWN
     Route: 062
  8. HAIR LOSS CREAM [Concomitant]
     Indication: ALOPECIA
     Dosage: DAILY DOSE: UNK.
     Route: 061
  9. B12 [Concomitant]
     Indication: MALNUTRITION
     Dosage: DAILY DOSE: UNK.
     Route: 048
  10. GARLIC [Concomitant]
     Indication: BLOOD CHOLESTEROL INCREASED
     Dosage: DAILY DOSE: UNK.
     Route: 048
  11. FOLIC ACID [Concomitant]
     Indication: MALNUTRITION
     Dosage: DAILY DOSE: UNK.
     Route: 048
  12. MULTIVITAMINS WITH MINERALS [Concomitant]
     Indication: MALNUTRITION
     Dosage: DAILY DOSE: UNK.
     Route: 048
  13. LIVER AID [Concomitant]
     Indication: LIVER DISORDER
     Dosage: DAILY DOSE: UNK.
     Route: 048
  14. GLUCOSAMIDE CHONDROITIN [Concomitant]
     Indication: ARTHROPATHY
     Dosage: DAILY DOSE: UNK.
     Route: 048
  15. CO Q10 [Concomitant]
     Indication: CARDIAC DISORDER
     Dosage: DAILY DOSE: UNK.
     Route: 048
  16. HAWTHORN [Concomitant]
     Indication: MALNUTRITION
     Dosage: DAILY DOSE: UNK.
     Route: 048
  17. ACIDOPHILUS [Concomitant]
     Indication: MALNUTRITION
     Dosage: DAILY DOSE: UNK.
     Route: 048
  18. ATENOLOL [Concomitant]
     Indication: HYPERTENSION
     Dosage: DAILY DOSE: 25 MILLIGRAM(S)
     Route: 048
  19. LISINOPRIL [Concomitant]
     Indication: HYPERTENSION
     Dosage: DAILY DOSE: 20 MILLIGRAM(S)
     Route: 048
  20. ASPIRIN [Concomitant]
     Indication: CARDIAC DISORDER
     Dosage: DAILY DOSE: 325 MILLIGRAM(S)
     Route: 048
  21. NIACIN [Concomitant]
     Indication: BLOOD CHOLESTEROL INCREASED
     Dosage: DAILY DOSE: 2000 MILLIGRAM(S)
     Route: 048

REACTIONS (9)
  - BLOOD CREATINE PHOSPHOKINASE MB INCREASED [None]
  - BLOOD TESTOSTERONE DECREASED [None]
  - CORONARY ARTERY OCCLUSION [None]
  - DEHYDRATION [None]
  - GENITAL DISORDER MALE [None]
  - HEART RATE INCREASED [None]
  - MITRAL VALVE INCOMPETENCE [None]
  - MUSCULAR WEAKNESS [None]
  - MYOCARDIAL INFARCTION [None]
